FAERS Safety Report 23145934 (Version 2)
Quarter: 2024Q1

REPORT INFORMATION
  Report Type: Report from Study
  Country: US (occurrence: US)
  Receive Date: 20231104
  Receipt Date: 20240229
  Transmission Date: 20240410
  Serious: No
  Sender: FDA-Public Use
  Company Number: US-002147023-NVSC2023US235783

PATIENT
  Sex: Male

DRUGS (2)
  1. ENTRESTO [Suspect]
     Active Substance: SACUBITRIL\VALSARTAN
     Indication: Product used for unknown indication
     Dosage: 1 DOSAGE FORM, BID (50 MG)
     Route: 065
     Dates: start: 202308
  2. ENTRESTO [Suspect]
     Active Substance: SACUBITRIL\VALSARTAN
     Dosage: 0.5 DOSAGE FORM (IN THE EVENING)
     Route: 065

REACTIONS (3)
  - Hypotension [Unknown]
  - Wrong technique in product usage process [Not Recovered/Not Resolved]
  - Underdose [Unknown]
